FAERS Safety Report 7525812-7 (Version None)
Quarter: 2011Q2

REPORT INFORMATION
  Report Type: 
  Country: None (occurrence: None)
  Receive Date: 20110606
  Receipt Date: 20110412
  Transmission Date: 20111010
  Serious: No
  Sender: FDA-Public Use
  Company Number: A0923017A

PATIENT
  Age: 27 Year
  Sex: Male

DRUGS (3)
  1. LAMICTAL [Suspect]
     Indication: BIPOLAR DISORDER
     Dosage: 200MG PER DAY
     Route: 048
     Dates: start: 20110201
  2. NO CONCURRENT MEDICATION [Concomitant]
  3. LAMICTAL [Concomitant]
     Dosage: 200MG UNKNOWN
     Route: 048
     Dates: start: 20100401, end: 20110201

REACTIONS (1)
  - NAUSEA [None]
